FAERS Safety Report 7681448-9 (Version None)
Quarter: 2011Q3

REPORT INFORMATION
  Report Type: 
  Country: None (occurrence: None)
  Receive Date: 20110812
  Receipt Date: 20110805
  Transmission Date: 20111222
  Serious: Yes (Other)
  Sender: FDA-Public Use
  Company Number: US-US-EMD SERONO, INC.-7069455

PATIENT
  Sex: Female
  Weight: 80 kg

DRUGS (11)
  1. LISINOPRIL [Concomitant]
  2. NORTRIPTYLINE HCL [Concomitant]
  3. PREDNISONE [Concomitant]
  4. LOTRISONE [Concomitant]
  5. NASONEX [Concomitant]
  6. CLONIDINE [Concomitant]
  7. REBIF [Suspect]
     Indication: MULTIPLE SCLEROSIS
     Route: 058
     Dates: start: 20110301, end: 20110725
  8. REBIF [Suspect]
     Dates: start: 20110101
  9. ALLEGRA [Concomitant]
  10. ESTRADIOL [Concomitant]
  11. TRIAMTERENE AND HYDROCHLOROTHIAZIDE [Concomitant]

REACTIONS (7)
  - DIARRHOEA [None]
  - INSOMNIA [None]
  - ARTHRALGIA [None]
  - INJECTION SITE HAEMATOMA [None]
  - ABDOMINAL PAIN UPPER [None]
  - INJECTION SITE ERYTHEMA [None]
  - STAPHYLOCOCCAL INFECTION [None]
